FAERS Safety Report 19746139 (Version 2)
Quarter: 2021Q3

REPORT INFORMATION
  Report Type: Report from Study
  Country: None (occurrence: CA)
  Receive Date: 20210826
  Receipt Date: 20210926
  Transmission Date: 20211014
  Serious: Yes (Death, Other)
  Sender: FDA-Public Use
  Company Number: CA-ABBVIE-21K-028-4053158-00

PATIENT
  Age: 89 Year
  Sex: Female

DRUGS (1)
  1. HUMIRA [Suspect]
     Active Substance: ADALIMUMAB
     Indication: RHEUMATOID ARTHRITIS
     Route: 058
     Dates: start: 20091001

REACTIONS (4)
  - Deep vein thrombosis [Fatal]
  - Pulmonary embolism [Fatal]
  - Hip fracture [Unknown]
  - Fall [Fatal]

NARRATIVE: CASE EVENT DATE: 202003
